FAERS Safety Report 21396222 (Version 1)
Quarter: 2022Q3

REPORT INFORMATION
  Report Type: Spontaneous
  Country: US (occurrence: US)
  Receive Date: 20220930
  Receipt Date: 20220930
  Transmission Date: 20221026
  Serious: Yes (Other)
  Sender: FDA-Public Use
  Company Number: US-AMGEN-USASP2022164820

PATIENT
  Sex: Male

DRUGS (3)
  1. RITUXIMAB [Suspect]
     Active Substance: RITUXIMAB
     Indication: Immune thrombocytopenia
     Dosage: UNK, QWK
     Route: 065
  2. ROMIPLOSTIM [Suspect]
     Active Substance: ROMIPLOSTIM
     Indication: Immune thrombocytopenia
     Dosage: UNK
     Route: 065
  3. TOZINAMERAN [Concomitant]
     Active Substance: TOZINAMERAN
     Dosage: UNK

REACTIONS (14)
  - Encephalopathy [Unknown]
  - Shock haemorrhagic [Unknown]
  - Critical illness [Unknown]
  - Bone marrow failure [Unknown]
  - Metabolic acidosis [Unknown]
  - Serum ferritin increased [Unknown]
  - Splenomegaly [Unknown]
  - Hypertriglyceridaemia [Unknown]
  - Off label use [Unknown]
  - Drug ineffective [Unknown]
  - Anaemia [Unknown]
  - Pyrexia [Unknown]
  - Occult blood positive [Unknown]
  - Drug ineffective for unapproved indication [Unknown]
